FAERS Safety Report 7337562-0 (Version None)
Quarter: 2011Q1

REPORT INFORMATION
  Report Type: 
  Country: None (occurrence: None)
  Receive Date: 20110228
  Receipt Date: 20110215
  Transmission Date: 20110831
  Serious: Yes (Other)
  Sender: FDA-Public Use
  Company Number: LEO-2011-00133

PATIENT
  Age: 66 Year
  Sex: Male
  Weight: 70 kg

DRUGS (4)
  1. SIMVASTATIN [Concomitant]
  2. INNOHEP [Suspect]
     Indication: VENA CAVA THROMBOSIS
     Dosage: 1000 IU (1000 IU, 1 IN 1 D), SUBCUTANEOUS
     Route: 058
     Dates: start: 20101119
  3. PLAVIX [Concomitant]
  4. NEXIUM (ESOMEPROZOLE MAGNESIUM) [Concomitant]

REACTIONS (4)
  - OFF LABEL USE [None]
  - DRUG INEFFECTIVE [None]
  - INCORRECT PRODUCT STORAGE [None]
  - DEEP VEIN THROMBOSIS [None]
